FAERS Safety Report 8308477-6 (Version None)
Quarter: 2012Q2

REPORT INFORMATION
  Report Type: 
  Country: None (occurrence: None)
  Receive Date: 20120424
  Receipt Date: 20120411
  Transmission Date: 20120825
  Serious: Yes (Hospitalization)
  Sender: FDA-Public Use
  Company Number: JP-ROCHE-1061452

PATIENT
  Sex: Male

DRUGS (10)
  1. DEPAKENE [Concomitant]
     Indication: EPILEPSY
     Route: 048
  2. WARFARIN SODIUM [Concomitant]
     Indication: MITRAL VALVE REPAIR
     Route: 048
     Dates: start: 20120312
  3. ASPIRIN [Concomitant]
     Route: 048
     Dates: start: 20120312
  4. RIZE [Concomitant]
     Indication: INSOMNIA
     Route: 048
     Dates: start: 20120312
  5. LASIX [Concomitant]
     Indication: CARDIAC FAILURE
     Route: 048
  6. CLOBAZAM [Concomitant]
     Indication: INSOMNIA
     Route: 048
  7. COTRIM [Concomitant]
     Indication: PROPHYLAXIS
     Route: 048
     Dates: start: 20120312
  8. RITUXIMAB [Suspect]
     Indication: MANTLE CELL LYMPHOMA
     Route: 042
     Dates: start: 20120314, end: 20120314
  9. DIFLUCAN [Concomitant]
     Indication: PROPHYLAXIS
     Route: 048
     Dates: start: 20120312
  10. ARGAMATE [Concomitant]
     Route: 048

REACTIONS (1)
  - COAGULATION TIME PROLONGED [None]
